FAERS Safety Report 9016720 (Version 2)
Quarter: 2013Q1

REPORT INFORMATION
  Report Type: Report from Study
  Country: DE (occurrence: DE)
  Receive Date: 20130116
  Receipt Date: 20130124
  Transmission Date: 20140127
  Serious: Yes (Death)
  Sender: FDA-Public Use
  Company Number: DE-TEVA-380717USA

PATIENT
  Age: 75 Year
  Sex: Male
  Weight: 68 kg

DRUGS (4)
  1. TREANDA [Suspect]
     Indication: CHRONIC LYMPHOCYTIC LEUKAEMIA
     Route: 042
     Dates: start: 20110615
  2. TREANDA [Suspect]
     Route: 042
     Dates: start: 20110920
  3. RITUXIMAB [Suspect]
     Indication: CHRONIC LYMPHOCYTIC LEUKAEMIA
     Route: 042
     Dates: start: 20110725
  4. RITUXIMAB [Suspect]
     Route: 042
     Dates: start: 20110919

REACTIONS (2)
  - Multi-organ failure [Fatal]
  - Sepsis [Fatal]
